FAERS Safety Report 22396736 (Version 1)
Quarter: 2023Q2

REPORT INFORMATION
  Report Type: Spontaneous
  Country: US (occurrence: US)
  Receive Date: 20230601
  Receipt Date: 20230601
  Transmission Date: 20230722
  Serious: No
  Sender: FDA-Public Use
  Company Number: US-AMGEN-USASP2023093057

PATIENT
  Age: 43 Year
  Sex: Male

DRUGS (1)
  1. TAVNEOS [Suspect]
     Active Substance: AVACOPAN
     Indication: Granulomatosis with polyangiitis
     Dosage: 30 MILLIGRAM, BID, WITH FOOD
     Route: 048
     Dates: start: 20221107

REACTIONS (5)
  - Unevaluable event [Unknown]
  - Vision blurred [Unknown]
  - Constipation [Unknown]
  - Product dose omission in error [Unknown]
  - Fatigue [Unknown]
